FAERS Safety Report 5656485-6 (Version None)
Quarter: 2008Q1

REPORT INFORMATION
  Report Type: 
  Country: None (occurrence: None)
  Receive Date: 20080309
  Receipt Date: 20080125
  Transmission Date: 20080703
  Serious: No
  Sender: FDA-Public Use
  Company Number: US-BAYER-200810433BCC

PATIENT
  Age: 75 Year
  Sex: Female
  Weight: 56 kg

DRUGS (5)
  1. ALEVE [Suspect]
     Indication: ARTHRITIS
     Dosage: TOTAL DAILY DOSE: 660 MG  UNIT DOSE: 220 MG
     Route: 048
     Dates: start: 20071215, end: 20080125
  2. LIBRIUM [Concomitant]
  3. ESTROGEN [Concomitant]
  4. PREMARIN [Concomitant]
  5. EXCEDRIN [Concomitant]

REACTIONS (1)
  - JOINT SWELLING [None]
